FAERS Safety Report 4701493-2 (Version None)
Quarter: 2005Q2

REPORT INFORMATION
  Report Type: 
  Country: None (occurrence: None)
  Receive Date: 20050627
  Receipt Date: 20050617
  Transmission Date: 20051028
  Serious: Yes (Life-Threatening, Hospitalization, Disabling)
  Sender: FDA-Public Use
  Company Number: GBWYE753517JUN05

PATIENT
  Age: 64 Year
  Sex: Male

DRUGS (1)
  1. ADVIL [Suspect]
     Indication: OSTEOARTHRITIS
     Dosage: 600 MG 3 X PER 1 DAY, ORAL
     Route: 048
     Dates: start: 20041201, end: 20050107

REACTIONS (3)
  - ANAEMIA [None]
  - NEPHRITIS INTERSTITIAL [None]
  - RENAL FAILURE ACUTE [None]
